FAERS Safety Report 6084908-X (Version None)
Quarter: 2009Q1

REPORT INFORMATION
  Report Type: 
  Country: None (occurrence: None)
  Receive Date: 20090220
  Receipt Date: 20090212
  Transmission Date: 20090719
  Serious: Yes (Hospitalization, Other)
  Sender: FDA-Public Use
  Company Number: PHEH2009US01678

PATIENT
  Sex: Male

DRUGS (4)
  1. GLEEVEC [Suspect]
     Indication: GASTROINTESTINAL STROMAL TUMOUR
     Dosage: 600 MG, QD
     Route: 048
     Dates: start: 20080401, end: 20081201
  2. GLEEVEC [Suspect]
     Dosage: 800 MG, QD
     Route: 048
     Dates: start: 20081201
  3. ANALGESICS [Concomitant]
  4. COCAINE [Concomitant]

REACTIONS (6)
  - ABDOMINAL PAIN [None]
  - ACUTE RESPIRATORY DISTRESS SYNDROME [None]
  - CYTOREDUCTIVE SURGERY [None]
  - MALIGNANT NEOPLASM PROGRESSION [None]
  - MECHANICAL VENTILATION [None]
  - PULMONARY TOXICITY [None]
